FAERS Safety Report 19421261 (Version 1)
Quarter: 2021Q2

REPORT INFORMATION
  Report Type: Other
  Country: IN (occurrence: IN)
  Receive Date: 20210615
  Receipt Date: 20210615
  Transmission Date: 20210717
  Serious: Yes (Hospitalization)
  Sender: FDA-Public Use
  Company Number: IN-B.BRAUN MEDICAL INC.-2112775

PATIENT
  Age: 26 Year
  Sex: Female

DRUGS (1)
  1. DEXTROSE INJECTIONS USP 0264?7510?00 0264?7510?20 [Suspect]
     Active Substance: DEXTROSE
     Indication: HYPEREMESIS GRAVIDARUM

REACTIONS (1)
  - Wernicke^s encephalopathy [None]
